FAERS Safety Report 7326078-3 (Version None)
Quarter: 2011Q1

REPORT INFORMATION
  Report Type: 
  Country: None (occurrence: None)
  Receive Date: 20110302
  Receipt Date: 20110222
  Transmission Date: 20110831
  Serious: Yes (Other)
  Sender: FDA-Public Use
  Company Number: BR-ROCHE-731702

PATIENT
  Sex: Female
  Weight: 92 kg

DRUGS (3)
  1. VITAMIN A [Concomitant]
  2. TOCILIZUMAB [Suspect]
     Indication: RHEUMATOID ARTHRITIS
     Dosage: FORM: INFUSION
     Route: 042
     Dates: start: 20100316
  3. CALCIUM [Concomitant]

REACTIONS (3)
  - WEIGHT INCREASED [None]
  - HYPERTENSION [None]
  - BLOOD CHOLESTEROL INCREASED [None]
